FAERS Safety Report 20782020 (Version 3)
Quarter: 2022Q2

REPORT INFORMATION
  Report Type: Spontaneous
  Country: US (occurrence: US)
  Receive Date: 20220504
  Receipt Date: 20220627
  Transmission Date: 20220720
  Serious: No
  Sender: FDA-Public Use
  Company Number: US-SA-SAC20220429000239

PATIENT
  Age: 59 Year
  Sex: Male

DRUGS (1)
  1. DUPIXENT [Suspect]
     Active Substance: DUPILUMAB
     Indication: Asthma
     Dosage: 300 MG, QOW
     Route: 058
     Dates: start: 20210331

REACTIONS (5)
  - Nasal congestion [Unknown]
  - Sneezing [Unknown]
  - Paranasal sinus discomfort [Unknown]
  - Eye pain [Not Recovered/Not Resolved]
  - Eye pruritus [Unknown]
